FAERS Safety Report 16571595 (Version 1)
Quarter: 2019Q3

REPORT INFORMATION
  Report Type: Spontaneous
  Country: US (occurrence: US)
  Receive Date: 20190713
  Receipt Date: 20190713
  Transmission Date: 20191004
  Serious: Yes (Other)
  Sender: FDA-Public Use
  Company Number: None

PATIENT
  Age: 56 Year
  Sex: Female
  Weight: 60.75 kg

DRUGS (3)
  1. VITAMINS [Concomitant]
     Active Substance: VITAMINS
  2. DIETARY SUPPLEMENTS [Concomitant]
     Active Substance: DIETARY SUPPLEMENT
  3. EQUATE COMFORT [Suspect]
     Active Substance: CARBOXYMETHYLCELLULOSE SODIUM\HYPROMELLOSES
     Indication: DRY EYE
     Route: 047
     Dates: start: 20190501, end: 20190710

REACTIONS (1)
  - Eye infection [None]

NARRATIVE: CASE EVENT DATE: 20190601
